FAERS Safety Report 7777670-3 (Version None)
Quarter: 2011Q3

REPORT INFORMATION
  Report Type: 
  Country: None (occurrence: None)
  Receive Date: 20110922
  Receipt Date: 20110913
  Transmission Date: 20111222
  Serious: Yes (Other)
  Sender: FDA-Public Use
  Company Number: CIP11002254

PATIENT
  Age: 70 Year
  Sex: Female

DRUGS (22)
  1. MIACALIN (CALCITONNIN, SALMON) [Concomitant]
  2. BONIVA [Suspect]
     Indication: OSTEOPOROSIS
     Dosage: ORAL
     Route: 048
     Dates: start: 20090101, end: 20090601
  3. ALLEFRA /01314201/ (FEXOFENADINE) [Concomitant]
  4. QUINAPRIL HCL [Concomitant]
  5. BUTALBITAL ACETAMINOPHEN AND CAFFEINE [Concomitant]
  6. FISH OIL (FISH OIL) [Concomitant]
  7. ALL OTHER THERAPEUTIC PRODUCTS [Concomitant]
  8. FLONASE [Concomitant]
  9. ERGOCALCIFEROL [Concomitant]
  10. CENTRUM SILVER /01292501/ (ASCORBIC ACID, CALCIUM, MINERALS NOS, RETIN [Concomitant]
  11. HYDROCHLOROTHIAZIDE [Concomitant]
  12. RANITIDINE (RANITDINE) [Concomitant]
  13. FORTEO [Concomitant]
  14. CITRACAL (CALCIUM CITRATE) [Concomitant]
  15. DOXEPIN HCL [Concomitant]
  16. COSAMIN DS (ASCORBIC ACID MANGANESE, CHONDROITIN SULFATE SODIUM, GLUCO [Concomitant]
  17. ACTONEL [Suspect]
     Indication: OSTEOPOROSIS
     Dosage: 35 MG ONCE A WEEK, ORAL; 35 MG ONCE A WEEK, ORAL; 35 MG ONCE A WEEK, ORAL
     Route: 048
     Dates: start: 20101101, end: 20110901
  18. ACTONEL [Suspect]
     Indication: OSTEOPOROSIS
     Dosage: 35 MG ONCE A WEEK, ORAL; 35 MG ONCE A WEEK, ORAL; 35 MG ONCE A WEEK, ORAL
     Route: 048
     Dates: start: 20090601, end: 20100901
  19. ACTONEL [Suspect]
     Indication: OSTEOPOROSIS
     Dosage: 35 MG ONCE A WEEK, ORAL; 35 MG ONCE A WEEK, ORAL; 35 MG ONCE A WEEK, ORAL
     Route: 048
     Dates: start: 20030101, end: 20090101
  20. BUSPAR [Concomitant]
  21. ASPIRIN [Concomitant]
  22. LORAZEPAM [Concomitant]

REACTIONS (7)
  - PAIN IN EXTREMITY [None]
  - MYALGIA [None]
  - ABDOMINAL PAIN UPPER [None]
  - FEMUR FRACTURE [None]
  - FALL [None]
  - STRESS FRACTURE [None]
  - GAIT DISTURBANCE [None]
